FAERS Safety Report 17260999 (Version 2)
Quarter: 2020Q1

REPORT INFORMATION
  Report Type: Spontaneous
  Country: US (occurrence: US)
  Receive Date: 20200113
  Receipt Date: 20200213
  Transmission Date: 20200409
  Serious: Yes (Hospitalization, Other)
  Sender: FDA-Public Use
  Company Number: US-APOTEX-2020AP005131

PATIENT
  Age: 50 Year
  Sex: Female

DRUGS (8)
  1. GENGRAF [Suspect]
     Active Substance: CYCLOSPORINE
     Indication: PROTEINURIA
     Dosage: 25 MG, BID
     Route: 065
  2. GENGRAF [Suspect]
     Active Substance: CYCLOSPORINE
     Dosage: 125 MG, BID
     Route: 065
  3. SIMVASTATIN. [Concomitant]
     Active Substance: SIMVASTATIN
     Indication: HYPERLIPIDAEMIA
     Dosage: UNK
     Route: 065
  4. LISINOPRIL. [Concomitant]
     Active Substance: LISINOPRIL
     Dosage: 40 MG, QD
     Route: 065
  5. GENGRAF [Suspect]
     Active Substance: CYCLOSPORINE
     Dosage: UNK, BID UPTITRATED UP TO 125 MG BID
     Route: 065
  6. GENGRAF [Suspect]
     Active Substance: CYCLOSPORINE
     Dosage: 100 MG, BID
     Route: 065
  7. LISINOPRIL. [Concomitant]
     Active Substance: LISINOPRIL
     Indication: HYPERTENSION
     Dosage: UNK UNK, BID TITRATED UP TO 20 MG
     Route: 065
  8. PREDNISONE. [Concomitant]
     Active Substance: PREDNISONE
     Indication: PRODUCT USED FOR UNKNOWN INDICATION
     Dosage: 10 MG, QD
     Route: 065

REACTIONS (2)
  - Hypertensive emergency [Recovered/Resolved]
  - Deafness unilateral [Unknown]
